FAERS Safety Report 6042269-6 (Version None)
Quarter: 2009Q1

REPORT INFORMATION
  Report Type: 
  Country: None (occurrence: None)
  Receive Date: 20090116
  Receipt Date: 20081128
  Transmission Date: 20090719
  Serious: Yes (Hospitalization)
  Sender: FDA-Public Use
  Company Number: FR-PFIZER INC-2008095805

PATIENT

DRUGS (9)
  1. LYRICA [Interacting]
     Indication: NEURALGIA
     Route: 048
     Dates: start: 20070101
  2. TRAMADOL HYDROCHLORIDE [Suspect]
     Indication: NEURALGIA
  3. DICODIN [Interacting]
     Indication: NEURALGIA
     Route: 048
     Dates: start: 20080201
  4. ACETAMINOPHEN [Concomitant]
     Dosage: UNK
  5. KLIPAL [Concomitant]
     Dates: start: 20070101, end: 20080201
  6. CORTANCYL [Concomitant]
  7. CARDENSIEL [Concomitant]
  8. AERIUS [Concomitant]
  9. LANTUS [Concomitant]

REACTIONS (5)
  - DRUG INTERACTION [None]
  - DYSPNOEA [None]
  - LUNG DISORDER [None]
  - MYOCLONUS [None]
  - SOMNOLENCE [None]
